FAERS Safety Report 4721573-5 (Version None)
Quarter: 2005Q3

REPORT INFORMATION
  Report Type: 
  Country: None (occurrence: None)
  Receive Date: 20050721
  Receipt Date: 20041203
  Transmission Date: 20060218
  Serious: Yes (Hospitalization)
  Sender: FDA-Public Use
  Company Number: US-BRISTOL-MYERS SQUIBB COMPANY-12784534

PATIENT
  Age: 71 Year
  Sex: Female
  Weight: 52 kg

DRUGS (9)
  1. COUMADIN [Suspect]
     Indication: THROMBOSIS
     Dosage: START 4MG QD 4 1/2 YRS AGO;7/03:TO 2MG QD;TIMES DOSE INCREASED OR DECREASED;STOPPED 4 MONTHS AGO
     Route: 048
     Dates: start: 20010101
  2. ANTIVERT [Concomitant]
  3. ASPIRIN [Suspect]
     Dates: start: 20040101
  4. MICARDIS [Concomitant]
  5. TALACEN [Concomitant]
  6. UNIRETIC [Concomitant]
  7. VALIUM [Concomitant]
  8. VIOXX [Concomitant]
  9. ZOLOFT [Concomitant]

REACTIONS (4)
  - ALOPECIA [None]
  - PEPTIC ULCER [None]
  - PROTHROMBIN LEVEL DECREASED [None]
  - RECTAL HAEMORRHAGE [None]
